FAERS Safety Report 23549587 (Version 6)
Quarter: 2024Q2

REPORT INFORMATION
  Report Type: Report from Study
  Country: US (occurrence: US)
  Receive Date: 20240221
  Receipt Date: 20240528
  Transmission Date: 20240715
  Serious: Yes (Hospitalization, Other)
  Sender: FDA-Public Use
  Company Number: US-UCBSA-2023053977

PATIENT
  Age: 0 Year
  Sex: Female
  Weight: 9.524 kg

DRUGS (7)
  1. FINTEPLA [Suspect]
     Active Substance: FENFLURAMINE
     Indication: Epilepsy
     Dosage: 0.9 MILLILITER, 2X/DAY (BID), ORAL/G TUBE
     Route: 048
     Dates: start: 20230816
  2. FINTEPLA [Suspect]
     Active Substance: FENFLURAMINE
     Indication: Off label use
     Dosage: 0.9 MILLILITER, 2X/DAY (BID), ORAL/G TUBE
     Route: 048
  3. FINTEPLA [Suspect]
     Active Substance: FENFLURAMINE
     Indication: Lennox-Gastaut syndrome
     Dosage: 0.9 MILLILITER, 2X/DAY (BID), ORAL/G TUBE
     Route: 048
  4. FINTEPLA [Suspect]
     Active Substance: FENFLURAMINE
     Dosage: 0.9 MILLILITER, 2X/DAY (BID), ORAL/G TUBE
     Route: 048
  5. BRIVIACT [Concomitant]
     Active Substance: BRIVARACETAM
     Indication: Seizure
     Dosage: UNK
     Dates: start: 20240120
  6. CLOBAZAM [Concomitant]
     Active Substance: CLOBAZAM
     Indication: Seizure
     Dosage: UNK
     Dates: start: 2023
  7. VIMPAT [Concomitant]
     Active Substance: LACOSAMIDE
     Indication: Seizure
     Dosage: UNK
     Dates: start: 2023

REACTIONS (7)
  - Gastroenteritis viral [Recovering/Resolving]
  - Seizure [Recovered/Resolved]
  - Gastrostomy [Not Recovered/Not Resolved]
  - Gastrointestinal tube insertion [Recovered/Resolved]
  - Weight increased [Unknown]
  - Drug ineffective [Unknown]
  - Off label use [Unknown]

NARRATIVE: CASE EVENT DATE: 20230816
